APPROVED DRUG PRODUCT: GENTAMICIN SULFATE
Active Ingredient: GENTAMICIN SULFATE
Strength: EQ 0.3% BASE
Dosage Form/Route: OINTMENT;OPHTHALMIC
Application: A065024 | Product #001
Applicant: FERA PHARMACEUTICALS LLC
Approved: Jul 30, 2004 | RLD: No | RS: Yes | Type: RX